FAERS Safety Report 8100249-0 (Version None)
Quarter: 2012Q1

REPORT INFORMATION
  Report Type: 
  Country: None (occurrence: None)
  Receive Date: 20120131
  Receipt Date: 20120124
  Transmission Date: 20120608
  Serious: Yes (Hospitalization)
  Sender: FDA-Public Use
  Company Number: ES-B.I. PHARMACEUTICALS,INC./RIDGEFIELD-2012-ES-00030ES

PATIENT
  Age: 84 Year
  Sex: Female

DRUGS (11)
  1. DISTRANEURINE [Concomitant]
     Dosage: 384 MG
     Route: 048
  2. METOCLOPRAMIDA [Concomitant]
     Dosage: 15 MG
     Route: 048
  3. ATENOLOL [Concomitant]
     Dosage: 25 MG
     Route: 048
  4. FERROUS SULFATE TAB [Concomitant]
     Route: 048
  5. SEROQUEL [Concomitant]
     Dosage: 50 MG
     Route: 048
  6. DIGOXIN [Concomitant]
     Dosage: 250 MCG
     Route: 048
  7. TRAMADOL HCL [Concomitant]
     Dosage: STRENGHT:37.5MG/325MG. 2 DF DAILY
     Route: 048
  8. HALOPERIDOL [Concomitant]
     Dosage: 20 GTT/ DAILY
     Route: 048
  9. RANITIDINA [Concomitant]
  10. PRADAXA [Suspect]
     Indication: ATRIAL FIBRILLATION
     Dosage: 220 MG
     Route: 048
     Dates: start: 20110301, end: 20111226
  11. ASPIRIN [Suspect]
     Dosage: 100 MG
     Route: 048
     Dates: start: 20080101

REACTIONS (2)
  - DRUG INTERACTION [None]
  - UPPER GASTROINTESTINAL HAEMORRHAGE [None]
